FAERS Safety Report 6762921-4 (Version None)
Quarter: 2010Q2

REPORT INFORMATION
  Report Type: 
  Country: None (occurrence: None)
  Receive Date: 20100609
  Receipt Date: 20100528
  Transmission Date: 20101027
  Serious: Yes (Hospitalization)
  Sender: FDA-Public Use
  Company Number: DE-ELI_LILLY_AND_COMPANY-DE201005007866

PATIENT
  Age: 83 Year
  Sex: Female

DRUGS (10)
  1. FORTEO [Suspect]
     Indication: OSTEOPOROSIS
     Dosage: UNK, DAILY (1/D)
     Route: 058
     Dates: start: 20090227
  2. ASPIRIN [Concomitant]
     Dosage: 100, UNK
     Route: 065
  3. FALICARD [Concomitant]
     Dosage: 80, UNKNOWN
     Route: 065
  4. PREDNISOLONE [Concomitant]
     Dosage: 5, UNKNOWN
     Route: 065
  5. PANTOZOL [Concomitant]
     Dosage: 20, UNKNOWN
     Route: 065
  6. SYMBICORT [Concomitant]
     Dosage: UNK, UNKNOWN
     Route: 065
  7. SIFROL [Concomitant]
     Dosage: 500, UNKNOWN
     Route: 065
  8. TOREM COR [Concomitant]
     Dosage: UNK, UNKNOWN
     Route: 065
  9. EXFORGE /01634301/ [Concomitant]
     Dosage: UNK, UNKNOWN
     Route: 065
  10. AMITRIPTYLINE [Concomitant]
     Dosage: 25 D/F, UNKNOWN
     Route: 065

REACTIONS (1)
  - CEREBROVASCULAR ACCIDENT [None]
